FAERS Safety Report 4284068-1 (Version None)
Quarter: 2004Q1

REPORT INFORMATION
  Report Type: 
  Country: None (occurrence: None)
  Receive Date: 20040130
  Receipt Date: 20040120
  Transmission Date: 20041129
  Serious: Yes (Other)
  Sender: FDA-Public Use
  Company Number: US-JNJFOC-20040104145

PATIENT
  Age: 66 Year
  Sex: Female

DRUGS (2)
  1. ULTRAM [Suspect]
     Indication: DRUG USE FOR UNKNOWN INDICATION
  2. NEURONTIN [Concomitant]

REACTIONS (3)
  - FALL [None]
  - HIP FRACTURE [None]
  - UPPER LIMB FRACTURE [None]
